FAERS Safety Report 8483619-0 (Version None)
Quarter: 2012Q3

REPORT INFORMATION
  Report Type: 
  Country: None (occurrence: None)
  Receive Date: 20120702
  Receipt Date: 20120621
  Transmission Date: 20120928
  Serious: Yes (Hospitalization)
  Sender: FDA-Public Use
  Company Number: US-ALLERGAN-1202453US

PATIENT
  Age: 32 Year
  Sex: Female

DRUGS (2)
  1. BOTOX COSMETIC [Suspect]
  2. BOTOX COSMETIC [Suspect]
     Indication: SKIN WRINKLING
     Dosage: 28 UNITS, SINGLE
     Route: 030
     Dates: start: 20120214, end: 20120214

REACTIONS (15)
  - HEART RATE IRREGULAR [None]
  - PANIC ATTACK [None]
  - FATIGUE [None]
  - HEADACHE [None]
  - PHARYNGEAL OEDEMA [None]
  - DYSPHONIA [None]
  - IMMUNE SYSTEM DISORDER [None]
  - DYSPNOEA [None]
  - DECREASED APPETITE [None]
  - SENSATION OF FOREIGN BODY [None]
  - MIGRAINE [None]
  - WEIGHT DECREASED [None]
  - SINUS DISORDER [None]
  - LOCAL SWELLING [None]
  - PALPITATIONS [None]
